FAERS Safety Report 4939424-2 (Version None)
Quarter: 2006Q1

REPORT INFORMATION
  Report Type: 
  Country: None (occurrence: None)
  Receive Date: 20060307
  Receipt Date: 20060224
  Transmission Date: 20060701
  Serious: Yes (Hospitalization, Other)
  Sender: FDA-Public Use
  Company Number: 200610168BVD

PATIENT
  Age: 57 Year
  Sex: Male

DRUGS (2)
  1. TRASYLOL [Suspect]
     Indication: CORONARY ARTERY SURGERY
     Dates: start: 19960501
  2. PLAVIX [Concomitant]

REACTIONS (10)
  - BALANCE DISORDER [None]
  - CEREBRAL ISCHAEMIA [None]
  - CEREBROVASCULAR ACCIDENT [None]
  - FOLATE DEFICIENCY [None]
  - HOMOCYSTINAEMIA [None]
  - LABILE HYPERTENSION [None]
  - LIPOPROTEIN (A) INCREASED [None]
  - THERAPY NON-RESPONDER [None]
  - VERTIGO [None]
  - VOMITING [None]
